FAERS Safety Report 10185498 (Version 2)
Quarter: 2014Q2

REPORT INFORMATION
  Report Type: Spontaneous
  Country: GR (occurrence: GR)
  Receive Date: 20140521
  Receipt Date: 20140521
  Transmission Date: 20141212
  Serious: Yes (Hospitalization)
  Sender: FDA-Public Use
  Company Number: PHHY2014GR042255

PATIENT
  Age: 80 Year
  Sex: Female

DRUGS (4)
  1. AFINITOR [Suspect]
     Indication: BREAST CANCER
     Route: 048
  2. AROMESTON [Concomitant]
  3. MIRCERA [Concomitant]
     Indication: ANAEMIA
  4. LOPRESSOR [Concomitant]

REACTIONS (16)
  - Hallucination [Recovering/Resolving]
  - Aphagia [Recovering/Resolving]
  - Rash [Unknown]
  - Dizziness [Recovering/Resolving]
  - Renal failure [Recovering/Resolving]
  - Blood creatinine increased [Recovering/Resolving]
  - Blood urea increased [Recovering/Resolving]
  - Dehydration [Recovering/Resolving]
  - Diarrhoea [Recovering/Resolving]
  - Vomiting [Recovering/Resolving]
  - Asthenia [Recovering/Resolving]
  - Stomatitis [Recovering/Resolving]
  - Mouth ulceration [Recovering/Resolving]
  - Blister [Unknown]
  - Skin discolouration [Unknown]
  - Dry skin [Unknown]
